FAERS Safety Report 6215512-8 (Version None)
Quarter: 2009Q2

REPORT INFORMATION
  Report Type: 
  Country: None (occurrence: None)
  Receive Date: 20090603
  Receipt Date: 20090602
  Transmission Date: 20091009
  Serious: Yes (Hospitalization)
  Sender: FDA-Public Use
  Company Number: LIT-609-002

PATIENT
  Age: 55 Year
  Sex: Male

DRUGS (11)
  1. LIDODERM [Suspect]
  2. ONDANSETRON [Concomitant]
  3. METOCLOPRAMIDE [Concomitant]
  4. HALOPERIDOL [Concomitant]
  5. PROCHLORPERAZINE [Concomitant]
  6. LEVOMEPROMAZINE [Concomitant]
  7. METHYLPHENIDATE HCL [Concomitant]
  8. MIRTAZAPINE [Concomitant]
  9. FENTANYL [Concomitant]
  10. ATENOLOL [Concomitant]
  11. RAMIPRIL [Concomitant]

REACTIONS (9)
  - ABDOMINAL PAIN UPPER [None]
  - DIZZINESS [None]
  - ERUCTATION [None]
  - HEADACHE [None]
  - NAUSEA [None]
  - NYSTAGMUS [None]
  - RETCHING [None]
  - TENDERNESS [None]
  - VOMITING [None]
